FAERS Safety Report 10128722 (Version 1)
Quarter: 2014Q2

REPORT INFORMATION
  Report Type: Spontaneous
  Country: US (occurrence: None)
  Receive Date: 20140424
  Receipt Date: 20140424
  Transmission Date: 20141212
  Serious: No
  Sender: FDA-Public Use
  Company Number: None

PATIENT
  Age: 79 Year
  Sex: Female

DRUGS (1)
  1. TARCEVA 100 MG  GENENTECH [Suspect]
     Indication: LUNG NEOPLASM MALIGNANT
     Dosage: 1 TABLET
     Route: 048
     Dates: start: 20130125, end: 20140423

REACTIONS (2)
  - Dry skin [None]
  - Hair texture abnormal [None]
